FAERS Safety Report 12436784 (Version 1)
Quarter: 2016Q2

REPORT INFORMATION
  Report Type: Spontaneous
  Country: US (occurrence: None)
  Receive Date: 20160603
  Receipt Date: 20160603
  Transmission Date: 20160815
  Serious: Yes (Hospitalization)
  Sender: FDA-Public Use
  Company Number: None

PATIENT
  Age: 68 Year
  Sex: Female
  Weight: 65.77 kg

DRUGS (7)
  1. ORASOL BENZOCAINE 20% [Suspect]
     Active Substance: BENZOCAINE
     Indication: TONGUE BITING
     Route: 048
     Dates: start: 20160405, end: 20160407
  2. ATORVASTATIN [Concomitant]
     Active Substance: ATORVASTATIN
  3. LOW DOSE ASPIRIN [Concomitant]
     Active Substance: ASPIRIN
  4. AMLODIPINE BESYLATE. [Concomitant]
     Active Substance: AMLODIPINE BESYLATE
  5. ORASOL BENZOCAINE 20% [Suspect]
     Active Substance: BENZOCAINE
     Indication: PAIN
     Route: 048
     Dates: start: 20160405, end: 20160407
  6. METFORMIN [Concomitant]
     Active Substance: METFORMIN HYDROCHLORIDE
  7. ALENDRONATE SODIUM. [Concomitant]
     Active Substance: ALENDRONATE SODIUM

REACTIONS (6)
  - Paraesthesia [None]
  - Methaemoglobinaemia [None]
  - Headache [None]
  - Heart rate increased [None]
  - Application site exfoliation [None]
  - Confusional state [None]

NARRATIVE: CASE EVENT DATE: 20160407
